FAERS Safety Report 14003439 (Version 1)
Quarter: 2017Q3

REPORT INFORMATION
  Report Type: Spontaneous
  Country: US (occurrence: US)
  Receive Date: 20170922
  Receipt Date: 20170922
  Transmission Date: 20171128
  Serious: Yes (Other)
  Sender: FDA-Public Use
  Company Number: US-ABBVIE-17K-163-2105457-00

PATIENT
  Sex: Female

DRUGS (7)
  1. HUMIRA [Suspect]
     Active Substance: ADALIMUMAB
     Indication: RHEUMATOID ARTHRITIS
     Route: 058
  2. XELJANZ [Concomitant]
     Active Substance: TOFACITINIB CITRATE
     Indication: PRODUCT USED FOR UNKNOWN INDICATION
  3. FOLIC ACID. [Concomitant]
     Active Substance: FOLIC ACID
     Indication: PRODUCT USED FOR UNKNOWN INDICATION
  4. METHOTREXATE. [Concomitant]
     Active Substance: METHOTREXATE
     Indication: PRODUCT USED FOR UNKNOWN INDICATION
  5. VITAMIN D [Concomitant]
     Active Substance: CHOLECALCIFEROL
     Indication: PRODUCT USED FOR UNKNOWN INDICATION
  6. SIMPONI [Suspect]
     Active Substance: GOLIMUMAB
     Indication: RHEUMATOID ARTHRITIS
     Route: 065
     Dates: start: 201608, end: 201705
  7. ENBREL [Suspect]
     Active Substance: ETANERCEPT
     Indication: RHEUMATOID ARTHRITIS
     Route: 065
     Dates: start: 201602, end: 201604

REACTIONS (16)
  - Leukopenia [Unknown]
  - Pain in extremity [Unknown]
  - Anaemia [Unknown]
  - Contusion [Unknown]
  - Drug hypersensitivity [Unknown]
  - Dry eye [Unknown]
  - Headache [Unknown]
  - Oedema peripheral [Unknown]
  - Osteoarthritis [Unknown]
  - White blood cell count decreased [Unknown]
  - Musculoskeletal stiffness [Unknown]
  - Rash [Unknown]
  - Fatigue [Unknown]
  - Injection site reaction [Unknown]
  - Stress [Unknown]
  - Erythema [Unknown]

NARRATIVE: CASE EVENT DATE: 2016
